FAERS Safety Report 7204976-9 (Version None)
Quarter: 2010Q4

REPORT INFORMATION
  Report Type: 
  Country: None (occurrence: None)
  Receive Date: 20101230
  Receipt Date: 20101229
  Transmission Date: 20110411
  Serious: Yes (Other)
  Sender: FDA-Public Use
  Company Number: BR-PFIZER INC-2010181630

PATIENT
  Age: 71 Year
  Sex: Male
  Weight: 57 kg

DRUGS (6)
  1. CHAMPIX [Suspect]
     Indication: TOBACCO USER
     Dosage: UNK
     Route: 048
     Dates: start: 20101223, end: 20100101
  2. CHAMPIX [Suspect]
     Dosage: 0.5 MG, 2X/DAY
     Route: 048
     Dates: start: 20100101
  3. FORMOTEROL W/BUDESONIDE [Concomitant]
     Indication: DYSPNOEA
     Dosage: 400 MG, 3X/DAY
  4. FORMOTEROL W/BUDESONIDE [Concomitant]
     Indication: BRONCHITIS
  5. BAMIFIX [Concomitant]
     Indication: DYSPNOEA
     Dosage: 300 MG, 1X/DAY
  6. BAMIFIX [Concomitant]
     Indication: BRONCHITIS

REACTIONS (2)
  - BLOOD PRESSURE INCREASED [None]
  - HEADACHE [None]
